FAERS Safety Report 4677929-2 (Version None)
Quarter: 2005Q2

REPORT INFORMATION
  Report Type: 
  Country: None (occurrence: None)
  Receive Date: 20050527
  Receipt Date: 20050527
  Transmission Date: 20051028
  Serious: Yes (Death)
  Sender: FDA-Public Use
  Company Number: None

PATIENT
  Age: 54 Year
  Sex: Male
  Weight: 77.1115 kg

DRUGS (16)
  1. RITALIN [Suspect]
  2. EFFEXOR XR [Suspect]
  3. ALPRAZOLAM [Suspect]
  4. PROZAC [Suspect]
  5. PROVIGIL [Suspect]
  6. STRATTERA [Suspect]
  7. VANCOMYCIN [Concomitant]
  8. ZOSYN [Concomitant]
  9. DILANTIN [Concomitant]
  10. FLAGYL [Concomitant]
  11. CASPOFUNGIN [Concomitant]
  12. CIPOJLOXACIN [Concomitant]
  13. YLUCANAXOL [Concomitant]
  14. DILAUDID [Concomitant]
  15. PHENOBARBETOL [Concomitant]
  16. MORPHENE [Concomitant]

REACTIONS (6)
  - DIARRHOEA [None]
  - POST PROCEDURAL COMPLICATION [None]
  - SEPSIS [None]
  - STEVENS-JOHNSON SYNDROME [None]
  - SUBARACHNOID HAEMORRHAGE [None]
  - TOXIC EPIDERMAL NECROLYSIS [None]
